FAERS Safety Report 10813516 (Version 1)
Quarter: 2015Q1

REPORT INFORMATION
  Report Type: Spontaneous
  Country: US (occurrence: US)
  Receive Date: 20150218
  Receipt Date: 20150218
  Transmission Date: 20150721
  Serious: No
  Sender: FDA-Public Use
  Company Number: US-PFIZER INC-2015061879

PATIENT
  Age: 88 Year
  Sex: Female
  Weight: 91 kg

DRUGS (2)
  1. NEURONTIN [Suspect]
     Active Substance: GABAPENTIN
     Indication: NEUROPATHY PERIPHERAL
  2. NORVASC [Concomitant]
     Active Substance: AMLODIPINE BESYLATE
     Indication: HYPERTENSION

REACTIONS (4)
  - Dizziness [Recovered/Resolved]
  - Logorrhoea [Recovered/Resolved]
  - Drug hypersensitivity [Unknown]
  - Feeling abnormal [Unknown]
